FAERS Safety Report 21724723 (Version 1)
Quarter: 2022Q4

REPORT INFORMATION
  Report Type: Other
  Country: SE (occurrence: SE)
  Receive Date: 20221213
  Receipt Date: 20221213
  Transmission Date: 20230113
  Serious: Yes (Hospitalization)
  Sender: FDA-Public Use
  Company Number: None

PATIENT
  Age: 14 Year
  Sex: Female

DRUGS (4)
  1. FLUOXETINE [Suspect]
     Active Substance: FLUOXETINE HYDROCHLORIDE
     Indication: Product used for unknown indication
     Dosage: 320 MILLIGRAM, TOTAL; (16 ST FLUOXETIN 20 MG)
     Route: 048
     Dates: start: 20210412, end: 20210412
  2. MELATONIN [Suspect]
     Active Substance: MELATONIN
     Indication: Product used for unknown indication
     Dosage: UNK, TOTAL; (DOSE 1); PER TOTAL; (18 ST MELATONIN)
     Route: 048
     Dates: start: 20210412, end: 20210412
  3. LISDEXAMFETAMINE DIMESYLATE [Suspect]
     Active Substance: LISDEXAMFETAMINE DIMESYLATE
     Indication: Product used for unknown indication
     Dosage: 360 MILLIGRAM, TOTAL
     Route: 048
     Dates: start: 20210412, end: 20210412
  4. IBUPROFEN [Suspect]
     Active Substance: IBUPROFEN
     Indication: Product used for unknown indication
     Dosage: 1600 MILLIGRAM, TOTAL
     Route: 048
     Dates: start: 20210412, end: 20210412

REACTIONS (2)
  - Intentional self-injury [Unknown]
  - Intentional overdose [Unknown]

NARRATIVE: CASE EVENT DATE: 20210412
